FAERS Safety Report 22266981 (Version 1)
Quarter: 2023Q2

REPORT INFORMATION
  Report Type: Spontaneous
  Country: GB (occurrence: GB)
  Receive Date: 20230428
  Receipt Date: 20230428
  Transmission Date: 20230722
  Serious: Yes (Other)
  Sender: FDA-Public Use
  Company Number: None

PATIENT
  Age: 76 Year
  Sex: Male

DRUGS (3)
  1. EDOXABAN TOSYLATE [Suspect]
     Active Substance: EDOXABAN TOSYLATE
     Indication: Anticoagulant therapy
     Dosage: 1 DF, QD (1 PER DAY)
     Route: 065
     Dates: start: 20230422, end: 20230424
  2. BISOPROLOL [Concomitant]
     Active Substance: BISOPROLOL
     Indication: Atrial fibrillation
     Dosage: UNK
     Route: 065
  3. CANDESARTAN [Concomitant]
     Active Substance: CANDESARTAN
     Indication: Atrial fibrillation
     Dosage: UNK
     Route: 065

REACTIONS (2)
  - Illness [Not Recovered/Not Resolved]
  - Fatigue [Not Recovered/Not Resolved]

NARRATIVE: CASE EVENT DATE: 20230422
